FAERS Safety Report 7521636-5 (Version None)
Quarter: 2011Q2

REPORT INFORMATION
  Report Type: 
  Country: None (occurrence: None)
  Receive Date: 20110524
  Receipt Date: 20110430
  Transmission Date: 20111010
  Serious: Yes (Other)
  Sender: FDA-Public Use
  Company Number: 2011P1006123

PATIENT
  Age: 53 Year
  Sex: Male
  Weight: 90.7194 kg

DRUGS (8)
  1. SEROQUEL [Concomitant]
  2. OXYCODONE [Concomitant]
  3. DEXEDRINE [Suspect]
     Indication: DEPRESSION
     Dosage: 10 MG; Q5.5H; PO
     Route: 048
     Dates: start: 20100627
  4. DEXEDRINE [Suspect]
     Indication: ATTENTION DEFICIT/HYPERACTIVITY DISORDER
     Dosage: 10 MG; Q5.5H; PO
     Route: 048
     Dates: start: 20100627
  5. EFFEXOR 225 (VENLAFAXINE HYDROCHLORIDE) [Concomitant]
  6. ALPRAZOLAM [Concomitant]
  7. LEOTHYROXINE [Concomitant]
  8. TESTOSTERONE PILL IMPLANT [Concomitant]

REACTIONS (5)
  - DEPRESSION [None]
  - AGITATION [None]
  - MOOD ALTERED [None]
  - SUICIDAL BEHAVIOUR [None]
  - DRUG INEFFECTIVE [None]
